FAERS Safety Report 7743223-6 (Version None)
Quarter: 2011Q3

REPORT INFORMATION
  Report Type: 
  Country: None (occurrence: None)
  Receive Date: 20110912
  Receipt Date: 20110902
  Transmission Date: 20111222
  Serious: Yes (Other)
  Sender: FDA-Public Use
  Company Number: US-ASTRAZENECA-2011SE53338

PATIENT
  Age: 51 Year
  Sex: Female

DRUGS (21)
  1. LASIX [Concomitant]
  2. ARMOUR [Concomitant]
  3. PAXIL CR [Concomitant]
  4. SLOW FE [Concomitant]
  5. PROTONIX [Concomitant]
  6. FLEXERIL [Concomitant]
  7. VASOTEC [Concomitant]
  8. FERROUS SULFATE TAB [Concomitant]
  9. ZYRTEC [Concomitant]
  10. CLARITIN [Concomitant]
  11. NAPROSYN [Concomitant]
  12. CIPROFLOXACIN [Concomitant]
  13. TOPROL-XL [Suspect]
     Route: 048
  14. PRILOSEC [Suspect]
     Route: 048
  15. PROVENTIL-HFA [Concomitant]
     Dosage: 90 MCG ACTUATION INHALER
  16. ADVAIR DISKUS 100/50 [Concomitant]
     Dosage: 100-50 MCG/ DOSE DISKUS INHALER
  17. VITAMIN B-12 [Concomitant]
     Dosage: 2500 MCG
  18. BONIVA [Concomitant]
  19. GLEEVEC [Concomitant]
  20. POTASSIUM CHLORIDE [Concomitant]
  21. ULTRAM [Concomitant]

REACTIONS (5)
  - CHRONIC MYELOID LEUKAEMIA [None]
  - OBESITY [None]
  - HYPERTENSION [None]
  - ASTHMA [None]
  - SLEEP APNOEA SYNDROME [None]
